FAERS Safety Report 4805080-7 (Version None)
Quarter: 2005Q4

REPORT INFORMATION
  Report Type: 
  Country: None (occurrence: None)
  Receive Date: 20051017
  Receipt Date: 20051003
  Transmission Date: 20060501
  Serious: Yes (Other)
  Sender: FDA-Public Use
  Company Number: 2005BI014945

PATIENT
  Age: 53 Year
  Sex: Female

DRUGS (7)
  1. AVONEX LYOPHILIZED [Suspect]
     Indication: MULTIPLE SCLEROSIS
     Dosage: 30 UG;QW;IM
     Route: 030
     Dates: start: 20000601
  2. AVONEX LIQUID [Suspect]
     Indication: MULTIPLE SCLEROSIS
     Dosage: IM
     Route: 030
  3. ZOCOR [Concomitant]
  4. TAMOXIFEN [Concomitant]
  5. EFFEXOR [Concomitant]
  6. LIQUID PROTEIN [Concomitant]
  7. SUPPLEMENTS [Concomitant]

REACTIONS (1)
  - BREAST CANCER FEMALE [None]
